FAERS Safety Report 6337846-9 (Version None)
Quarter: 2009Q3

REPORT INFORMATION
  Report Type: 
  Country: None (occurrence: None)
  Receive Date: 20090902
  Receipt Date: 20090826
  Transmission Date: 20100115
  Serious: Yes (Death, Life-Threatening, Hospitalization)
  Sender: FDA-Public Use
  Company Number: B0469527A

PATIENT
  Sex: Male

DRUGS (8)
  1. ZEFIX [Suspect]
     Indication: HEPATIC CIRRHOSIS
     Dosage: 100MG PER DAY
     Route: 048
     Dates: start: 20050902, end: 20080316
  2. HEPSERA [Suspect]
     Indication: HEPATIC CIRRHOSIS
     Dosage: 10MG PER DAY
     Route: 048
     Dates: start: 20061228, end: 20080507
  3. ALDACTONE [Concomitant]
     Route: 048
  4. PARIET [Concomitant]
     Route: 048
  5. PROMAC [Concomitant]
     Route: 048
  6. MERCAZOLE [Concomitant]
     Route: 048
  7. LIVACT [Concomitant]
     Indication: DRUG USE FOR UNKNOWN INDICATION
     Route: 048
  8. URSO 250 [Concomitant]
     Indication: HEPATIC CIRRHOSIS
     Route: 048

REACTIONS (6)
  - DRUG RESISTANCE [None]
  - HEPATIC FUNCTION ABNORMAL [None]
  - HEPATIC NEOPLASM MALIGNANT [None]
  - HEPATITIS [None]
  - HYPERTHYROIDISM [None]
  - THYROID FUNCTION TEST ABNORMAL [None]
